FAERS Safety Report 5731773-3 (Version None)
Quarter: 2008Q2

REPORT INFORMATION
  Report Type: 
  Country: None (occurrence: None)
  Receive Date: 20080506
  Receipt Date: 20080506
  Transmission Date: 20081010
  Serious: Yes (Hospitalization)
  Sender: FDA-Public Use
  Company Number: None

PATIENT
  Age: 44 Year
  Sex: Male
  Weight: 81 kg

DRUGS (7)
  1. PANITUMUMAB [Suspect]
     Indication: HEAD AND NECK CANCER
     Dosage: 6.0 MG/KG Q3WK IV
     Route: 042
     Dates: start: 20080417, end: 20080421
  2. DOCETAXEL [Suspect]
     Dosage: 75MG/M2 Q3WK
  3. CISPLATIN [Suspect]
     Dosage: 100 MG/M2 Q3WK
  4. FLUOROURACIL [Suspect]
     Dosage: 800 MG/M2 D1-4 Q3WK
  5. MINOCYCLINE HCL [Concomitant]
  6. NYSTATIN [Concomitant]
  7. OMEPRAZOLE [Concomitant]

REACTIONS (2)
  - FEBRILE NEUTROPENIA [None]
  - MUCOSAL INFLAMMATION [None]
